FAERS Safety Report 19039397 (Version 1)
Quarter: 2021Q1

REPORT INFORMATION
  Report Type: Spontaneous
  Country: IN (occurrence: IN)
  Receive Date: 20210322
  Receipt Date: 20210322
  Transmission Date: 20210420
  Serious: Yes (Other)
  Sender: FDA-Public Use
  Company Number: IN-FRESENIUS KABI-FK202102644

PATIENT
  Age: 25 Year
  Sex: Male

DRUGS (3)
  1. CYTARABINE (MANUFACTURER UNKNOWN) [Suspect]
     Active Substance: CYTARABINE
     Dosage: CONSOLIDATION THERAPY WITH HIGH?DOSE CYTARABINE
     Route: 065
  2. CYTARABINE (MANUFACTURER UNKNOWN) [Suspect]
     Active Substance: CYTARABINE
     Dosage: RE?INDUCTION CHEMOTHERAPY
     Route: 065
  3. CYTARABINE (MANUFACTURER UNKNOWN) [Suspect]
     Active Substance: CYTARABINE
     Indication: ACUTE MYELOID LEUKAEMIA
     Dosage: INDUCTION CHEMOTHERAPY WITH 7+3 CHEMOTHERAPY REGIMEN INCLUDING CYTARABINE
     Route: 065

REACTIONS (3)
  - Proctalgia [Unknown]
  - Febrile neutropenia [Unknown]
  - Thrombophlebitis [Unknown]
